FAERS Safety Report 5126763-8 (Version None)
Quarter: 2006Q4

REPORT INFORMATION
  Report Type: 
  Country: None (occurrence: None)
  Receive Date: 20061010
  Receipt Date: 20061003
  Transmission Date: 20070319
  Serious: Yes (Death, Other)
  Sender: FDA-Public Use
  Company Number: 163-20785-06070832

PATIENT
  Age: 71 Year
  Sex: Male

DRUGS (1)
  1. THALOMID (THALIDOMIDE) (100 MILLIGRAM, CASPSULES) [Suspect]
     Indication: RENAL CELL CARCINOMA STAGE UNSPECIFIED
     Dosage: 200 MG, 2 IN 1 D, ORAL
     Route: 048
     Dates: start: 20041101

REACTIONS (2)
  - MALIGNANT NEOPLASM PROGRESSION [None]
  - THYMOMA MALIGNANT [None]
